FAERS Safety Report 10236366 (Version 1)
Quarter: 2014Q2

REPORT INFORMATION
  Report Type: Spontaneous
  Country: JP (occurrence: JP)
  Receive Date: 20140613
  Receipt Date: 20140613
  Transmission Date: 20141212
  Serious: Yes (Death)
  Sender: FDA-Public Use
  Company Number: JP-WATSON-2014-13419

PATIENT
  Sex: Female
  Weight: 57 kg

DRUGS (1)
  1. CHLORPHENIRAMINE MALEATE (WATSON LABORATORIES) [Suspect]
     Indication: PRODUCT USED FOR UNKNOWN INDICATION
     Dosage: UNKNOWN
     Route: 065

REACTIONS (3)
  - Somnolence [Fatal]
  - Drowning [Fatal]
  - Overdose [Fatal]
